FAERS Safety Report 21503339 (Version 2)
Quarter: 2022Q4

REPORT INFORMATION
  Report Type: Spontaneous
  Country: PT (occurrence: PT)
  Receive Date: 20221025
  Receipt Date: 20221031
  Transmission Date: 20230112
  Serious: Yes (Hospitalization, Other)
  Sender: FDA-Public Use
  Company Number: PT-009507513-2210PRT005825

PATIENT
  Sex: Male

DRUGS (4)
  1. AXITINIB [Suspect]
     Active Substance: AXITINIB
     Indication: Renal cell carcinoma
     Dosage: UNK
  2. AXITINIB [Suspect]
     Active Substance: AXITINIB
     Dosage: UNK
  3. PEMBROLIZUMAB [Suspect]
     Active Substance: PEMBROLIZUMAB
     Indication: Renal cell carcinoma
     Dosage: UNK
  4. PEMBROLIZUMAB [Suspect]
     Active Substance: PEMBROLIZUMAB
     Dosage: UNK

REACTIONS (1)
  - Encephalitis [Recovered/Resolved]
